FAERS Safety Report 8136294-9 (Version None)
Quarter: 2012Q1

REPORT INFORMATION
  Report Type: 
  Country: None (occurrence: None)
  Receive Date: 20120103
  Receipt Date: 20111115
  Transmission Date: 20120608
  Serious: No
  Sender: FDA-Public Use
  Company Number: AE-2011-002648

PATIENT
  Age: 60 Year
  Sex: Male
  Weight: 89.3586 kg

DRUGS (5)
  1. LISINOPRIL [Concomitant]
  2. INCIVEK [Suspect]
     Dosage: (750 MG,Q7-9 HRS.), ORAL
     Route: 048
     Dates: start: 20110917, end: 20111029
  3. RIBAVIRIN [Concomitant]
  4. PEGINTERFERON (PEGINTERFERON ALFA-2A) [Concomitant]
  5. ASPIRIN [Concomitant]

REACTIONS (3)
  - DYSPNOEA [None]
  - RASH PRURITIC [None]
  - ASTHENIA [None]
